FAERS Safety Report 7008774-0 (Version None)
Quarter: 2010Q3

REPORT INFORMATION
  Report Type: 
  Country: None (occurrence: None)
  Receive Date: 20100921
  Receipt Date: 20100907
  Transmission Date: 20110219
  Serious: Yes (Death, Hospitalization)
  Sender: FDA-Public Use
  Company Number: FKO201000391

PATIENT
  Age: 30 Year
  Sex: Male

DRUGS (4)
  1. ETOPOSIDE [Suspect]
     Indication: CHRONIC MYELOID LEUKAEMIA
     Dates: start: 20050501
  2. IMATINIB (IMATINIB) (IMATINIB) [Suspect]
     Dosage: (400 MG/DAY)
     Dates: start: 20030501
  3. IFOSFAMIDE (IFOSFAMIDE) (IFOSFAMIDE) [Suspect]
     Indication: CHRONIC MYELOID LEUKAEMIA
     Dates: start: 20050501
  4. CISPLATIN [Suspect]
     Indication: CHRONIC MYELOID LEUKAEMIA
     Dates: start: 20050501

REACTIONS (6)
  - CONFUSIONAL STATE [None]
  - HEADACHE [None]
  - METASTASES TO LUNG [None]
  - NAUSEA [None]
  - SOMNOLENCE [None]
  - TESTICULAR CANCER METASTATIC [None]
